FAERS Safety Report 9325599 (Version 2)
Quarter: 2013Q3

REPORT INFORMATION
  Report Type: Report from Study
  Country: AR (occurrence: AR)
  Receive Date: 20130604
  Receipt Date: 20130827
  Transmission Date: 20140515
  Serious: Yes (Death)
  Sender: FDA-Public Use
  Company Number: PHHY2013AR056031

PATIENT
  Sex: Male

DRUGS (2)
  1. ONBREZ [Suspect]
     Indication: RESPIRATORY DISORDER
     Dosage: 150 UG, UNK
     Dates: start: 2005
  2. ONBREZ [Suspect]
     Indication: OFF LABEL USE

REACTIONS (1)
  - Death [Fatal]
